FAERS Safety Report 4396306-5 (Version None)
Quarter: 2004Q3

REPORT INFORMATION
  Report Type: 
  Country: None (occurrence: None)
  Receive Date: 20040713
  Receipt Date: 20030703
  Transmission Date: 20050211
  Serious: Yes (Hospitalization)
  Sender: FDA-Public Use
  Company Number: AO-GLAXOSMITHKLINE-B0303369B

PATIENT
  Age: 71 Year
  Sex: Male

DRUGS (10)
  1. ROSIGLITAZONE [Suspect]
     Indication: DIABETES MELLITUS NON-INSULIN-DEPENDENT
     Route: 048
     Dates: start: 20021213, end: 20031013
  2. GLUCOPHAGE [Concomitant]
     Indication: DIABETES MELLITUS NON-INSULIN-DEPENDENT
     Dosage: 1000MG PER DAY
     Route: 048
     Dates: start: 19970101
  3. ZOCORD [Concomitant]
     Dosage: 20MG PER DAY
     Route: 048
     Dates: start: 19900101
  4. IMPUGAN [Concomitant]
     Indication: CARDIAC FAILURE
     Dosage: 40MG PER DAY
     Route: 048
     Dates: start: 19970101, end: 20030530
  5. TROMBYL [Concomitant]
     Indication: PROPHYLAXIS
     Dosage: 75MG PER DAY
     Route: 048
     Dates: start: 19900101
  6. SOTALOL HCL [Concomitant]
     Indication: EXTRASYSTOLES
     Dosage: 80MG PER DAY
     Route: 048
     Dates: start: 19870101
  7. IMDUR [Concomitant]
     Indication: ANGINA PECTORIS
     Route: 048
     Dates: start: 19900101
  8. TRIATEC [Concomitant]
     Indication: CARDIAC FAILURE
     Dosage: 510MG PER DAY
     Route: 048
     Dates: start: 19900101
  9. SUSCARD [Concomitant]
  10. SELOKEN ZOC [Concomitant]

REACTIONS (15)
  - ANAEMIA [None]
  - AORTIC ATHEROSCLEROSIS [None]
  - ASCITES [None]
  - BIOPSY BONE MARROW ABNORMAL [None]
  - CARDIAC FAILURE [None]
  - DYSPNOEA EXERTIONAL [None]
  - GASTRITIS EROSIVE [None]
  - GENERAL PHYSICAL HEALTH DETERIORATION [None]
  - HEPATIC CIRRHOSIS [None]
  - MITRAL VALVE INCOMPETENCE [None]
  - OEDEMA PERIPHERAL [None]
  - PANCYTOPENIA [None]
  - PLEURAL EFFUSION [None]
  - SPLENOMEGALY [None]
  - THROMBOCYTOPENIA [None]
